FAERS Safety Report 25496843 (Version 1)
Quarter: 2025Q3

REPORT INFORMATION
  Report Type: Spontaneous
  Country: US (occurrence: US)
  Receive Date: 20250701
  Receipt Date: 20250701
  Transmission Date: 20251020
  Serious: Yes (Other)
  Sender: SANOFI AVENTIS
  Company Number: US-SA-2025SA182918

PATIENT
  Age: 47 Year
  Sex: Female
  Weight: 61.68 kg

DRUGS (4)
  1. DUPIXENT [Suspect]
     Active Substance: DUPILUMAB
     Dosage: 300 MG, QOW
     Route: 058
     Dates: start: 20241030
  2. IBUPROFEN [Concomitant]
     Active Substance: IBUPROFEN
  3. ELIDEL [Concomitant]
     Active Substance: PIMECROLIMUS
  4. VENTOLIN HFA [Concomitant]
     Active Substance: ALBUTEROL SULFATE

REACTIONS (4)
  - Angle closure glaucoma [Unknown]
  - Urinary tract infection [Unknown]
  - Cholelithotomy [Unknown]
  - Cholecystectomy [Unknown]

NARRATIVE: CASE EVENT DATE: 20250101
